FAERS Safety Report 16520076 (Version 1)
Quarter: 2019Q3

REPORT INFORMATION
  Report Type: Spontaneous
  Country: US (occurrence: US)
  Receive Date: 20190702
  Receipt Date: 20190702
  Transmission Date: 20191004
  Serious: Yes (Death, Other)
  Sender: FDA-Public Use
  Company Number: US-PFIZER INC-2019280346

PATIENT
  Age: 77 Year
  Sex: Male

DRUGS (2)
  1. EFFEXOR [Suspect]
     Active Substance: VENLAFAXINE HYDROCHLORIDE
     Indication: HOT FLUSH
     Dosage: 37.5 MG, 1X/DAY (WHEN NEEDED)
     Route: 048
     Dates: start: 20130307
  2. CIPRO [Concomitant]
     Active Substance: CIPROFLOXACIN HYDROCHLORIDE
     Dosage: 250 MG, 2X/DAY
     Route: 048

REACTIONS (7)
  - Decreased appetite [Unknown]
  - Fear of death [Unknown]
  - Panic attack [Unknown]
  - Malaise [Unknown]
  - Insomnia [Unknown]
  - Vomiting [Unknown]
  - Asphyxia [Unknown]
